FAERS Safety Report 23118818 (Version 1)
Quarter: 2023Q4

REPORT INFORMATION
  Report Type: Report from Study
  Country: CA (occurrence: CA)
  Receive Date: 20231028
  Receipt Date: 20231028
  Transmission Date: 20240109
  Serious: Yes (Death, Other)
  Sender: FDA-Public Use
  Company Number: CA-SANDOZ-SDZ2023CA047459

PATIENT
  Sex: Female

DRUGS (1)
  1. FULVESTRANT [Suspect]
     Active Substance: FULVESTRANT
     Indication: Product used for unknown indication
     Dosage: 250 MG(2X 250 MG/5 ML)Q28DAYS
     Route: 030
     Dates: start: 20220912, end: 20231025

REACTIONS (1)
  - Death [Fatal]
